FAERS Safety Report 18689285 (Version 4)
Quarter: 2021Q1

REPORT INFORMATION
  Report Type: Spontaneous
  Country: US (occurrence: US)
  Receive Date: 20201231
  Receipt Date: 20210115
  Transmission Date: 20210419
  Serious: Yes (Other)
  Sender: FDA-Public Use
  Company Number: US-009507513-2012USA012544

PATIENT
  Age: 38 Year
  Sex: Female
  Weight: 79.91 kg

DRUGS (11)
  1. TOPAMAX [Concomitant]
     Active Substance: TOPIRAMATE
     Dosage: 1 TABLET, ONCE A DAY (QD)
     Route: 048
  2. NEXPLANON [Suspect]
     Active Substance: ETONOGESTREL
     Indication: CONTRACEPTION
     Dosage: 1 ROD 3 YEARS, UPPER LEFT ARM
     Route: 059
     Dates: start: 20191219, end: 20201230
  3. COLLAGEN [Concomitant]
     Active Substance: COLLAGEN
  4. MILI [Concomitant]
     Active Substance: ETHINYL ESTRADIOL\NORGESTIMATE
     Dosage: STRENGTH: 0.25?35 MILLIGRAM?MICROGRAM
     Route: 048
  5. LEVOTHYROXINE SODIUM. [Concomitant]
     Active Substance: LEVOTHYROXINE SODIUM
     Dosage: 1 TABLET, ON AN EMPTY STOMACH, IN THE MORNING, ONCE A DAY (QD)
     Route: 048
  6. VALACYCLOVIR HYDROCHLORIDE. [Concomitant]
     Active Substance: VALACYCLOVIR HYDROCHLORIDE
     Dosage: 1 TABLET, ONCE A DAY (QD)
     Route: 048
  7. ARIPIPRAZOLE. [Concomitant]
     Active Substance: ARIPIPRAZOLE
     Dosage: 1 TABLET, ONCE A DAY (QD)
     Route: 048
  8. IRON (UNSPECIFIED) (+) MINERALS (UNSPECIFIED) (+) VITAMINS (UNSPECIFIE [Concomitant]
     Active Substance: IRON\MINERALS\VITAMINS
     Dosage: 1 TABLET, ONCE A DAY (QD)
     Route: 048
  9. FOLIC ACID. [Concomitant]
     Active Substance: FOLIC ACID
     Dosage: 1 TABLET, ONCE A DAY (QD)
     Route: 048
  10. BIOTIN [Concomitant]
     Active Substance: BIOTIN
     Dosage: 1 TABLET, ONCE A DAY (QD)
     Route: 048
  11. VITAMIN E [Concomitant]
     Active Substance: .ALPHA.-TOCOPHEROL
     Dosage: 1 CAPSULE, ONCE A DAY (QD)
     Route: 048

REACTIONS (5)
  - Weight abnormal [Unknown]
  - Device dislocation [Recovered/Resolved]
  - Carpal tunnel syndrome [Not Recovered/Not Resolved]
  - Arthralgia [Recovered/Resolved]
  - Axillary pain [Recovered/Resolved]

NARRATIVE: CASE EVENT DATE: 20201221
